FAERS Safety Report 5931919-8 (Version None)
Quarter: 2008Q4

REPORT INFORMATION
  Report Type: 
  Country: None (occurrence: None)
  Receive Date: 20081027
  Receipt Date: 20081015
  Transmission Date: 20090506
  Serious: Yes (Other)
  Sender: FDA-Public Use
  Company Number: US-PFIZER INC-2008087870

PATIENT
  Sex: Female
  Weight: 68.181 kg

DRUGS (3)
  1. CHANTIX [Suspect]
     Indication: SMOKING CESSATION THERAPY
     Dates: start: 20081014, end: 20081014
  2. ZESTRIL [Concomitant]
     Indication: HYPERTENSION
  3. ARMOUR THYROID [Concomitant]
     Indication: THYROID DISORDER

REACTIONS (2)
  - ABNORMAL SENSATION IN EYE [None]
  - HEADACHE [None]
